FAERS Safety Report 5466771-0 (Version None)
Quarter: 2007Q3

REPORT INFORMATION
  Report Type: 
  Country: None (occurrence: None)
  Receive Date: 20070925
  Receipt Date: 20070914
  Transmission Date: 20080115
  Serious: Yes (Other)
  Sender: FDA-Public Use
  Company Number: US-JNJFOC-20070903381

PATIENT
  Sex: Female
  Weight: 57.15 kg

DRUGS (5)
  1. DURAGESIC-100 [Suspect]
     Route: 062
  2. DURAGESIC-100 [Suspect]
     Indication: PAIN
     Route: 062
  3. FENTANYL TRANSDERMAL SYSTEM [Suspect]
     Indication: PAIN
     Route: 062
  4. LAMICTAL [Concomitant]
     Indication: CONVULSION PROPHYLAXIS
     Route: 048
  5. ADVIL LIQUI-GELS [Concomitant]
     Indication: HEADACHE
     Route: 048

REACTIONS (11)
  - AMNESIA [None]
  - BACK INJURY [None]
  - BLOOD CHOLESTEROL INCREASED [None]
  - CONVULSION [None]
  - DRUG ADMINISTRATION ERROR [None]
  - HYPERHIDROSIS [None]
  - INSOMNIA [None]
  - LOSS OF CONSCIOUSNESS [None]
  - PAIN [None]
  - PANIC ATTACK [None]
  - ROAD TRAFFIC ACCIDENT [None]
